FAERS Safety Report 7234073-8 (Version None)
Quarter: 2011Q1

REPORT INFORMATION
  Report Type: 
  Country: None (occurrence: None)
  Receive Date: 20110119
  Receipt Date: 20110117
  Transmission Date: 20110831
  Serious: Yes (Hospitalization, Other)
  Sender: FDA-Public Use
  Company Number: DK-ABBOTT-10P-044-0662102-00

PATIENT
  Sex: Female
  Weight: 62 kg

DRUGS (10)
  1. HUMIRA [Suspect]
     Dates: start: 20100801
  2. IBUPROFEN [Concomitant]
     Indication: ARTHRALGIA
  3. DOLOL [Concomitant]
     Indication: ARTHRALGIA
  4. CONTALGIN [Concomitant]
     Indication: ARTHRALGIA
  5. HUMIRA [Suspect]
  6. HUMIRA [Suspect]
     Dates: start: 20101007
  7. METHOTREXATE SANDOZ [Suspect]
     Indication: PSORIATIC ARTHROPATHY
     Route: 048
     Dates: start: 20100101
  8. METHOTREXATE [Concomitant]
     Indication: PSORIASIS
     Dates: start: 20101007
  9. HUMIRA [Suspect]
     Indication: PSORIATIC ARTHROPATHY
     Route: 042
     Dates: start: 20100510
  10. HUMIRA [Suspect]
     Dates: start: 20101101

REACTIONS (13)
  - PYREXIA [None]
  - VOMITING [None]
  - PHARYNGITIS [None]
  - URINARY TRACT INFECTION [None]
  - MALAISE [None]
  - HEADACHE [None]
  - INFECTION [None]
  - NAUSEA [None]
  - ORAL HERPES [None]
  - BRONCHITIS [None]
  - BLOOD URINE PRESENT [None]
  - PHARYNGEAL INFLAMMATION [None]
  - FATIGUE [None]
